FAERS Safety Report 7715532-8 (Version None)
Quarter: 2011Q3

REPORT INFORMATION
  Report Type: 
  Country: None (occurrence: None)
  Receive Date: 20110829
  Receipt Date: 20110818
  Transmission Date: 20111222
  Serious: Yes (Hospitalization, Other)
  Sender: FDA-Public Use
  Company Number: US-AMGEN-USASP2011026916

PATIENT
  Age: 41 Year
  Sex: Female
  Weight: 92.971 kg

DRUGS (7)
  1. FOLIC ACID [Concomitant]
     Dosage: UNK UNK, QD
     Dates: start: 20090901, end: 20100601
  2. MULTIVITAMIN                       /00097801/ [Concomitant]
     Dosage: UNK UNK, QD
     Dates: start: 20090901, end: 20100501
  3. CLOMID [Concomitant]
     Dosage: UNK
     Dates: start: 20020101
  4. ENBREL [Suspect]
     Dosage: 50 MG, 2 TIMES/WK
     Dates: start: 20070101
  5. ENBREL [Suspect]
     Dosage: 50 MG, QWK
     Dates: start: 20090101, end: 20090801
  6. ENBREL [Suspect]
     Indication: PSORIASIS
     Dosage: 50 MG, QWK
     Dates: start: 20101201
  7. SYNTHROID [Concomitant]
     Dosage: 145 MUG, QD
     Dates: start: 19890101

REACTIONS (6)
  - PSORIASIS [None]
  - NASOPHARYNGITIS [None]
  - INFLUENZA [None]
  - CEPHALO-PELVIC DISPROPORTION [None]
  - INJECTION SITE URTICARIA [None]
  - GESTATIONAL HYPERTENSION [None]
